FAERS Safety Report 24459334 (Version 1)
Quarter: 2024Q4

REPORT INFORMATION
  Report Type: Report from Study
  Country: CA (occurrence: CA)
  Receive Date: 20241018
  Receipt Date: 20241018
  Transmission Date: 20250114
  Serious: No
  Sender: ROCHE
  Company Number: CA-ROCHE-3528618

PATIENT
  Sex: Female

DRUGS (16)
  1. RITUXAN [Suspect]
     Active Substance: RITUXIMAB
     Indication: Pemphigus
     Route: 041
     Dates: start: 20140826, end: 20160328
  2. RITUXAN [Suspect]
     Active Substance: RITUXIMAB
     Route: 041
     Dates: start: 20160329, end: 20160505
  3. RITUXAN [Suspect]
     Active Substance: RITUXIMAB
     Route: 041
     Dates: start: 20160506, end: 20160519
  4. RITUXAN [Suspect]
     Active Substance: RITUXIMAB
     Dosage: SINGLE INFUSIONS
     Route: 041
     Dates: start: 20160520, end: 20171114
  5. RITUXAN [Suspect]
     Active Substance: RITUXIMAB
     Route: 041
     Dates: start: 20190506, end: 20221020
  6. RITUXIMAB [Suspect]
     Active Substance: RITUXIMAB
     Indication: Product used for unknown indication
     Route: 065
  7. ACETAMINOPHEN [Concomitant]
     Active Substance: ACETAMINOPHEN
     Route: 048
     Dates: start: 20140826
  8. ATENOLOL [Concomitant]
     Active Substance: ATENOLOL
  9. DIPHENHYDRAMINE [Concomitant]
     Active Substance: DIPHENHYDRAMINE
     Route: 048
     Dates: start: 20140826
  10. FORTEO [Concomitant]
     Active Substance: TERIPARATIDE
     Dates: start: 2020
  11. HUMAN IMMUNOGLOBULIN G [Concomitant]
     Active Substance: HUMAN IMMUNOGLOBULIN G
     Indication: Pemphigus
  12. IMURAN [Concomitant]
     Active Substance: AZATHIOPRINE
  13. METHYLPREDNISOLONE [Concomitant]
     Active Substance: METHYLPREDNISOLONE
     Route: 042
     Dates: start: 20140826
  14. NORVASC [Concomitant]
     Active Substance: AMLODIPINE BESYLATE
  15. PREDNISONE [Concomitant]
     Active Substance: PREDNISONE
  16. PROLIA [Concomitant]
     Active Substance: DENOSUMAB
     Dates: start: 2020

REACTIONS (1)
  - Hypersensitivity [Unknown]
